FAERS Safety Report 6543850-8 (Version None)
Quarter: 2010Q1

REPORT INFORMATION
  Report Type: 
  Country: None (occurrence: None)
  Receive Date: 20100119
  Receipt Date: 20100119
  Transmission Date: 20100710
  Serious: No
  Sender: FDA-Public Use
  Company Number: None

PATIENT
  Age: 66 Year
  Weight: 57.1532 kg

DRUGS (1)
  1. TYLENOL PM 500 ACETAMINOPHEN 25 MG HCL MCNEIL - PPC INC [Suspect]
     Indication: INSOMNIA
     Dosage: 2 CAPLETS AT BEDTIME NIGHTLY PO
     Route: 048
     Dates: start: 20071001, end: 20100116

REACTIONS (3)
  - ABDOMINAL PAIN UPPER [None]
  - DRUG INEFFECTIVE [None]
  - PRODUCT QUALITY ISSUE [None]
